FAERS Safety Report 8214680-6 (Version None)
Quarter: 2012Q1

REPORT INFORMATION
  Report Type: 
  Country: None (occurrence: None)
  Receive Date: 20120316
  Receipt Date: 20120307
  Transmission Date: 20120608
  Serious: Yes (Hospitalization, Other)
  Sender: FDA-Public Use
  Company Number: AU-SANOFI-AVENTIS-2012SA010711

PATIENT
  Age: 82 Year
  Sex: Female
  Weight: 96 kg

DRUGS (1)
  1. PLAVIX [Suspect]
     Route: 065
     Dates: start: 20070401, end: 20120206

REACTIONS (2)
  - GASTRIC CANCER [None]
  - GASTRIC ULCER [None]
